FAERS Safety Report 20745734 (Version 12)
Quarter: 2025Q1

REPORT INFORMATION
  Report Type: Spontaneous
  Country: US (occurrence: US)
  Receive Date: 20220425
  Receipt Date: 20250116
  Transmission Date: 20250408
  Serious: No
  Sender: PFIZER
  Company Number: US-PFIZER INC-202101789701

PATIENT
  Age: 75 Year
  Sex: Female

DRUGS (4)
  1. LORBRENA [Suspect]
     Active Substance: LORLATINIB
     Indication: Lung carcinoma cell type unspecified stage 0
     Dosage: 100 MG, DAILY
  2. LORBRENA [Suspect]
     Active Substance: LORLATINIB
     Dosage: 75 MG, 1X/DAY (TAKE 75 MG BY ONE TIME EACH DAY. TAKE THREE 25MG PILLS DAILY)
     Route: 048
     Dates: start: 20220118
  3. INFLUENZA VIRUS VACCINE [Concomitant]
     Active Substance: INFLUENZA VIRUS VACCINE
     Indication: Immunisation
  4. NEURONTIN [Concomitant]
     Active Substance: GABAPENTIN
     Dosage: 300 MG, 3X/DAY (TAKE 1 CAPSULE IN MORNING, 1 CAPSULE AT NOON, 1 CAPSULE EVENING)
     Route: 048

REACTIONS (2)
  - Neoplasm progression [Unknown]
  - Headache [Unknown]
